FAERS Safety Report 14294696 (Version 1)
Quarter: 2017Q4

REPORT INFORMATION
  Report Type: Spontaneous
  Country: GB (occurrence: GB)
  Receive Date: 20171218
  Receipt Date: 20171218
  Transmission Date: 20180321
  Serious: Yes (Life-Threatening, Other)
  Sender: FDA-Public Use
  Company Number: GB-ACCORD-061882

PATIENT
  Age: 17 Year
  Sex: Female

DRUGS (3)
  1. ETOPOSIDE. [Suspect]
     Active Substance: ETOPOSIDE
     Indication: OVARIAN GERM CELL ENDODERMAL SINUS TUMOUR STAGE I
  2. BLEOMYCIN [Suspect]
     Active Substance: BLEOMYCIN SULFATE
     Indication: OVARIAN GERM CELL ENDODERMAL SINUS TUMOUR STAGE I
  3. CISPLATIN. [Suspect]
     Active Substance: CISPLATIN
     Indication: OVARIAN GERM CELL ENDODERMAL SINUS TUMOUR STAGE I

REACTIONS (2)
  - Drug ineffective [Unknown]
  - Off label use [Unknown]
